FAERS Safety Report 9269205 (Version 1)
Quarter: 2013Q2

REPORT INFORMATION
  Report Type: Spontaneous
  Country: US (occurrence: US)
  Receive Date: 20130503
  Receipt Date: 20130503
  Transmission Date: 20140414
  Serious: Yes (Hospitalization)
  Sender: FDA-Public Use
  Company Number: US-PFIZER INC-2013133470

PATIENT
  Age: 61 Year
  Sex: Male

DRUGS (1)
  1. VIAGRA [Suspect]
     Indication: PROSTATE CANCER
     Dosage: UNK, 2X/DAY
     Dates: start: 2009, end: 2009

REACTIONS (2)
  - Transient global amnesia [Unknown]
  - Off label use [Unknown]
